FAERS Safety Report 5389680-4 (Version None)
Quarter: 2007Q3

REPORT INFORMATION
  Report Type: 
  Country: None (occurrence: None)
  Receive Date: 20070717
  Receipt Date: 20070705
  Transmission Date: 20080115
  Serious: Yes (Hospitalization, Other)
  Sender: FDA-Public Use
  Company Number: US-SHR-US-2007-018215

PATIENT
  Age: 62 Year
  Sex: Female

DRUGS (1)
  1. BETASERON [Suspect]
     Indication: MULTIPLE SCLEROSIS
     Dosage: 8 MIU, EVERY 2D
     Route: 058
     Dates: start: 20031113

REACTIONS (8)
  - BLOOD GLUCOSE INCREASED [None]
  - COMA [None]
  - INFECTION [None]
  - MOBILITY DECREASED [None]
  - SKIN ULCER [None]
  - SPEECH DISORDER [None]
  - URINARY TRACT INFECTION [None]
  - UROSTOMY COMPLICATION [None]
